FAERS Safety Report 10149208 (Version 1)
Quarter: 2014Q2

REPORT INFORMATION
  Report Type: Spontaneous
  Country: CA (occurrence: CA)
  Receive Date: 20140502
  Receipt Date: 20140502
  Transmission Date: 20141212
  Serious: Yes (Death, Hospitalization)
  Sender: FDA-Public Use
  Company Number: CA-009507513-1405CAN000065

PATIENT
  Age: 65 Year
  Sex: Female
  Weight: 67 kg

DRUGS (1)
  1. JANUVIA [Suspect]
     Dosage: 100 MG, 1 EVERY 1 DAY(S) (QD)
     Route: 048

REACTIONS (12)
  - Cardio-respiratory arrest [Fatal]
  - Coagulopathy [Fatal]
  - Haematuria [Fatal]
  - Confusional state [Fatal]
  - Disseminated intravascular coagulation [Fatal]
  - Dyspnoea [Fatal]
  - Haematemesis [Fatal]
  - Tachycardia [Fatal]
  - Hypertension [Fatal]
  - Pyrexia [Fatal]
  - Pancreatitis [Fatal]
  - Renal failure acute [Fatal]
